FAERS Safety Report 14869177 (Version 1)
Quarter: 2018Q2

REPORT INFORMATION
  Report Type: Spontaneous
  Country: DE (occurrence: DE)
  Receive Date: 20180509
  Receipt Date: 20180509
  Transmission Date: 20180711
  Serious: Yes (Hospitalization, Other)
  Sender: FDA-Public Use
  Company Number: DE-AUROBINDO-AUR-APL-2018-024749

PATIENT
  Sex: Male

DRUGS (1)
  1. METFORMIN FILM-COATED TABLET [Suspect]
     Active Substance: METFORMIN HYDROCHLORIDE
     Indication: PRODUCT USED FOR UNKNOWN INDICATION
     Dosage: ()
     Route: 048
     Dates: end: 2018

REACTIONS (6)
  - Nausea [Unknown]
  - Cerebrovascular accident [Unknown]
  - Fall [Unknown]
  - Diarrhoea [Unknown]
  - Weight decreased [Unknown]
  - Epilepsy [Unknown]
